FAERS Safety Report 14121168 (Version 3)
Quarter: 2019Q1

REPORT INFORMATION
  Report Type: Spontaneous
  Country: US (occurrence: US)
  Receive Date: 20171024
  Receipt Date: 20190204
  Transmission Date: 20190417
  Serious: Yes (Hospitalization, Other)
  Sender: FDA-Public Use
  Company Number: US-PFIZER INC-2017452824

PATIENT
  Age: 53 Year
  Sex: Male
  Weight: 98.41 kg

DRUGS (9)
  1. AMBIEN [Concomitant]
     Active Substance: ZOLPIDEM TARTRATE
     Indication: SLEEP DISORDER
     Dosage: 10 MG, AS NEEDED (TAKE 1 AS NEEDED)
     Dates: start: 2013
  2. ATIVAN [Concomitant]
     Active Substance: LORAZEPAM
     Indication: ANXIETY
     Dosage: UNK (2-5MG, 1-2 AS NEEDED)
     Dates: start: 201610
  3. FLEXERIL [Suspect]
     Active Substance: CYCLOBENZAPRINE HYDROCHLORIDE
     Indication: PAIN
     Dosage: 10 MG, AS NEEDED 3-4 TIMES A DAY)
     Dates: start: 201106
  4. CELEBREX [Suspect]
     Active Substance: CELECOXIB
     Dosage: 200 MG, 1X/DAY
  5. FLEXERIL [Suspect]
     Active Substance: CYCLOBENZAPRINE HYDROCHLORIDE
     Indication: MUSCLE SPASMS
  6. LYRICA [Suspect]
     Active Substance: PREGABALIN
     Indication: NERVE INJURY
     Dosage: 150 MG, 1X/DAY
     Dates: start: 201206
  7. CELEBREX [Suspect]
     Active Substance: CELECOXIB
     Indication: ARTHRITIS
     Dosage: 200 MG, 1X/DAY
     Dates: start: 201206
  8. CELEBREX [Suspect]
     Active Substance: CELECOXIB
     Dosage: 200 MG, 1X/DAY
  9. LOSARTAN. [Concomitant]
     Active Substance: LOSARTAN
     Indication: BLOOD PRESSURE ABNORMAL
     Dosage: 10 MG, 1X/DAY
     Dates: start: 2015

REACTIONS (14)
  - Muscle rupture [Not Recovered/Not Resolved]
  - Pain in extremity [Recovered/Resolved]
  - Sciatica [Not Recovered/Not Resolved]
  - Headache [Recovered/Resolved]
  - Product dose omission [Unknown]
  - Ligament sprain [Not Recovered/Not Resolved]
  - Insomnia [Unknown]
  - Contusion [Unknown]
  - Soft tissue disorder [Unknown]
  - Feeling abnormal [Not Recovered/Not Resolved]
  - Condition aggravated [Not Recovered/Not Resolved]
  - Road traffic accident [Not Recovered/Not Resolved]
  - Peripheral swelling [Recovered/Resolved]
  - Burning sensation [Not Recovered/Not Resolved]

NARRATIVE: CASE EVENT DATE: 20110606
